FAERS Safety Report 9029310 (Version 1)
Quarter: 2013Q1

REPORT INFORMATION
  Report Type: Spontaneous
  Country: US (occurrence: US)
  Receive Date: 20130124
  Receipt Date: 20130124
  Transmission Date: 20140127
  Serious: No
  Sender: FDA-Public Use
  Company Number: US-TARO-2011P1013912

PATIENT
  Sex: 0

DRUGS (1)
  1. TOPICORT [Suspect]

REACTIONS (2)
  - Allergy test positive [Unknown]
  - Unevaluable event [None]
